FAERS Safety Report 25858498 (Version 1)
Quarter: 2025Q3

REPORT INFORMATION
  Report Type: Spontaneous
  Country: US (occurrence: US)
  Receive Date: 20250929
  Receipt Date: 20250929
  Transmission Date: 20251020
  Serious: No
  Sender: Valinor Pharma
  Company Number: US-GRUNENTHAL-2025-122985

PATIENT
  Sex: Male

DRUGS (1)
  1. MOVANTIK [Suspect]
     Active Substance: NALOXEGOL OXALATE
     Indication: Product used for unknown indication
     Dosage: 25 MILLIGRAM, 1/DAY
     Route: 048

REACTIONS (2)
  - Flatulence [Unknown]
  - Pollakiuria [Unknown]
